FAERS Safety Report 7545274-3 (Version None)
Quarter: 2011Q2

REPORT INFORMATION
  Report Type: 
  Country: None (occurrence: None)
  Receive Date: 20110607
  Receipt Date: 20110525
  Transmission Date: 20111010
  Serious: No
  Sender: FDA-Public Use
  Company Number: 2011P1006781

PATIENT
  Age: 23 Year
  Sex: Female
  Weight: 51.2565 kg

DRUGS (6)
  1. CETIRIZINE HCL [Suspect]
     Indication: ARTHROPOD BITE
     Dosage: 1 TSP; BID;, 1 TSP HS
     Dates: start: 20110523, end: 20110524
  2. CETIRIZINE HCL [Suspect]
     Indication: ARTHROPOD BITE
     Dosage: 1 TSP; BID;, 1 TSP HS
     Dates: start: 20110525
  3. PREDNISOLONE [Concomitant]
  4. LIQUID IRON [Concomitant]
  5. CREAM (UNSPECIFIED) [Concomitant]
  6. AUGEMENT (AMOXICILLIN AND CLAVULANATE) [Concomitant]

REACTIONS (10)
  - FATIGUE [None]
  - SWELLING FACE [None]
  - DYSPNOEA [None]
  - ALLERGY TO ARTHROPOD BITE [None]
  - PAIN IN EXTREMITY [None]
  - SKIN DISCOLOURATION [None]
  - DRY THROAT [None]
  - OEDEMA PERIPHERAL [None]
  - DRUG HYPERSENSITIVITY [None]
  - INFECTED BITES [None]
